FAERS Safety Report 17676885 (Version 1)
Quarter: 2020Q2

REPORT INFORMATION
  Report Type: Spontaneous
  Country: US (occurrence: US)
  Receive Date: 20200416
  Receipt Date: 20200416
  Transmission Date: 20200714
  Serious: Yes (Hospitalization)
  Sender: FDA-Public Use
  Company Number: None

PATIENT
  Age: 75 Year
  Sex: Male
  Weight: 95.3 kg

DRUGS (2)
  1. GEMCITABINE HYDROCHLORIDE. [Suspect]
     Active Substance: GEMCITABINE HYDROCHLORIDE
     Dates: end: 20200323
  2. CISPLATIN. [Suspect]
     Active Substance: CISPLATIN
     Dates: end: 20200324

REACTIONS (2)
  - Blood creatinine increased [None]
  - Escherichia urinary tract infection [None]

NARRATIVE: CASE EVENT DATE: 20200402
